FAERS Safety Report 23236789 (Version 2)
Quarter: 2023Q4

REPORT INFORMATION
  Report Type: Report from Study
  Country: KR (occurrence: KR)
  Receive Date: 20231128
  Receipt Date: 20231201
  Transmission Date: 20240110
  Serious: Yes (Hospitalization)
  Sender: FDA-Public Use
  Company Number: KR-Eisai-EC-2023-153574

PATIENT
  Age: 43 Year
  Sex: Male
  Weight: 65.4 kg

DRUGS (9)
  1. LENVATINIB [Suspect]
     Active Substance: LENVATINIB
     Indication: Oesophageal cancer metastatic
     Dosage: STARTING DOSE 20 MG, FLUCTUATED DOSAGE
     Route: 048
     Dates: start: 20230922
  2. PEMBROLIZUMAB [Suspect]
     Active Substance: PEMBROLIZUMAB
     Indication: Oesophageal cancer metastatic
     Route: 042
     Dates: start: 20220922, end: 20231011
  3. PEMBROLIZUMAB [Suspect]
     Active Substance: PEMBROLIZUMAB
     Route: 042
     Dates: start: 20231122
  4. DIOVAN [Concomitant]
     Active Substance: VALSARTAN
     Dates: start: 201703
  5. NORVASC [Concomitant]
     Active Substance: AMLODIPINE BESYLATE
     Dates: start: 20221123
  6. LACTICARE HC [HYDROCORTISONE] [Concomitant]
     Dates: start: 20230308
  7. HYSONE [HYDROCORTISONE] [Concomitant]
     Dates: start: 20230531
  8. MEGACE [Concomitant]
     Active Substance: MEGESTROL ACETATE
     Dates: start: 20230531
  9. LEVOTHYROXINE SODIUM [Concomitant]
     Active Substance: LEVOTHYROXINE SODIUM
     Dates: start: 20230104

REACTIONS (1)
  - Pneumonia [Not Recovered/Not Resolved]

NARRATIVE: CASE EVENT DATE: 20231110
